FAERS Safety Report 8001593-8 (Version None)
Quarter: 2011Q4

REPORT INFORMATION
  Report Type: 
  Country: None (occurrence: None)
  Receive Date: 20111222
  Receipt Date: 20111214
  Transmission Date: 20120403
  Serious: Yes (Other)
  Sender: FDA-Public Use
  Company Number: AR-ROCHE-1002476

PATIENT
  Sex: Female

DRUGS (3)
  1. LUCENTIS [Suspect]
     Route: 050
  2. LUCENTIS [Suspect]
     Indication: MACULOPATHY
     Route: 050
     Dates: start: 20110301
  3. LUCENTIS [Suspect]
     Route: 050

REACTIONS (3)
  - EYE HAEMORRHAGE [None]
  - OCULAR DISCOMFORT [None]
  - BLINDNESS [None]
